FAERS Safety Report 6327507-4 (Version None)
Quarter: 2009Q3

REPORT INFORMATION
  Report Type: 
  Country: None (occurrence: None)
  Receive Date: 20090825
  Receipt Date: 20090324
  Transmission Date: 20100115
  Serious: Yes (Hospitalization, Other)
  Sender: FDA-Public Use
  Company Number: DE-ROCHE-623813

PATIENT
  Sex: Male
  Weight: 63.5 kg

DRUGS (5)
  1. CAPECITABINE [Suspect]
     Dosage: FOURTH CYCLE
     Route: 048
     Dates: start: 20071130
  2. CAPECITABINE [Suspect]
     Dosage: CYCLES 1-3
     Route: 048
     Dates: end: 20071101
  3. BEVACIZUMAB [Suspect]
     Route: 042
     Dates: start: 20071130
  4. ASPIRIN [Concomitant]
     Route: 048
     Dates: start: 20070808
  5. BISOPROLOL [Concomitant]
     Route: 042
     Dates: start: 20070808

REACTIONS (6)
  - DISEASE PROGRESSION [None]
  - DYSPNOEA [None]
  - GENERAL PHYSICAL HEALTH DETERIORATION [None]
  - INSOMNIA [None]
  - NAUSEA [None]
  - VOMITING [None]
